FAERS Safety Report 19257806 (Version 1)
Quarter: 2021Q2

REPORT INFORMATION
  Report Type: Report from Study
  Country: US (occurrence: US)
  Receive Date: 20210514
  Receipt Date: 20210514
  Transmission Date: 20210717
  Serious: No
  Sender: FDA-Public Use
  Company Number: NVSC2021US103388

PATIENT
  Sex: Male

DRUGS (1)
  1. COSENTYX [Suspect]
     Active Substance: SECUKINUMAB
     Indication: PSORIATIC ARTHROPATHY
     Dosage: 300 MG, ONCE WEEKLY FOR 5 WEEKS, THEN ONCE
     Route: 058
     Dates: start: 20210310

REACTIONS (3)
  - Psoriasis [Unknown]
  - Arthralgia [Unknown]
  - Therapeutic response shortened [Unknown]
